FAERS Safety Report 5621589-0 (Version None)
Quarter: 2008Q1

REPORT INFORMATION
  Report Type: 
  Country: None (occurrence: None)
  Receive Date: 20080129
  Receipt Date: 20080114
  Transmission Date: 20080703
  Serious: Yes (Death)
  Sender: FDA-Public Use
  Company Number: B0503102A

PATIENT
  Age: 39 Year
  Sex: Female

DRUGS (5)
  1. BUPROPION HYDROCHLORIDE [Suspect]
     Dosage: ORAL
     Route: 048
  2. MEPROBAMATE [Suspect]
     Dosage: ORAL
     Route: 048
  3. ANTIHISTAMINE (FORMULATION UNKNOWN) (ANTIHISTAMINE) [Suspect]
     Dosage: ORAL
     Route: 048
  4. DECONGESTANT (FORMULATION UNKNOWN) (DECONGESTANT) [Suspect]
     Dosage: ORAL
     Route: 048
  5. DEXTROMETHORPHAN HYDROBROMIDE [Suspect]
     Dosage: ORAL
     Route: 048

REACTIONS (3)
  - CARDIO-RESPIRATORY ARREST [None]
  - COMPLETED SUICIDE [None]
  - OVERDOSE [None]
